FAERS Safety Report 8825736 (Version 1)
Quarter: 2012Q4

REPORT INFORMATION
  Report Type: 
  Country: US (occurrence: US)
  Receive Date: 20121004
  Receipt Date: 20121004
  Transmission Date: 20130627
  Serious: No
  Sender: FDA-Public Use
  Company Number: US-B.I. PHARMACEUTICALS,INC./RIDGEFIELD-2012-BP-23155BP

PATIENT
  Age: 84 Year
  Sex: Female
  Weight: 46 kg

DRUGS (9)
  1. SPIRIVA [Suspect]
     Indication: EMPHYSEMA
     Dosage: 18 mcg
     Route: 055
     Dates: start: 20120917
  2. COMBIVENT [Suspect]
     Indication: EMPHYSEMA
     Route: 055
     Dates: start: 2010, end: 20120917
  3. ALBUTEROL SULFATE [Concomitant]
     Indication: LUNG DISORDER
     Route: 055
     Dates: start: 20120917
  4. PROFORMA MIST [Concomitant]
     Indication: LUNG DISORDER
     Route: 055
     Dates: start: 20120917
  5. DIGOXIN [Concomitant]
     Indication: ATRIAL FIBRILLATION
     Dosage: 0.125 mg
     Route: 048
     Dates: start: 2002
  6. SYNTHROID [Concomitant]
     Indication: THYROID OPERATION
     Dosage: 50 mcg
     Route: 048
     Dates: start: 2006
  7. VERAPAMIL ER [Concomitant]
     Indication: ATRIAL FIBRILLATION
     Dosage: 120 mg
     Route: 048
     Dates: start: 2002
  8. RESTASIS [Concomitant]
     Indication: DRY EYE
  9. REFRESH [Concomitant]
     Indication: DRY EYE

REACTIONS (2)
  - Drug ineffective [Not Recovered/Not Resolved]
  - Dyspnoea [Not Recovered/Not Resolved]
